FAERS Safety Report 8580552-0 (Version None)
Quarter: 2012Q3

REPORT INFORMATION
  Report Type: 
  Country: None (occurrence: None)
  Receive Date: 20120808
  Receipt Date: 20120731
  Transmission Date: 20120928
  Serious: Yes (Hospitalization, Other)
  Sender: FDA-Public Use
  Company Number: GB-TEVA-351871ISR

PATIENT
  Sex: Female

DRUGS (3)
  1. VENTOLIN [Concomitant]
     Indication: PRODUCT USED FOR UNKNOWN INDICATION
     Route: 065
  2. AMOXICILLIN [Concomitant]
     Indication: PRODUCT USED FOR UNKNOWN INDICATION
     Route: 065
  3. PREDNISOLONE [Suspect]
     Indication: LOWER RESPIRATORY TRACT INFECTION
     Route: 065

REACTIONS (3)
  - ELECTROCARDIOGRAM ABNORMAL [None]
  - DYSPNOEA [None]
  - BLOOD PRESSURE SYSTOLIC INCREASED [None]
